FAERS Safety Report 6981342-2 (Version None)
Quarter: 2010Q3

REPORT INFORMATION
  Report Type: 
  Country: None (occurrence: None)
  Receive Date: 20100914
  Receipt Date: 20100831
  Transmission Date: 20110219
  Serious: Yes (Life-Threatening, Hospitalization)
  Sender: FDA-Public Use
  Company Number: SA-MYLANLABS-2010S1015974

PATIENT
  Age: 36 Year
  Sex: Female

DRUGS (17)
  1. CISAPRIDE [Interacting]
     Indication: GASTROOESOPHAGEAL REFLUX DISEASE
     Route: 065
     Dates: start: 19981201, end: 19981207
  2. METRONIDAZOLE [Interacting]
     Indication: HAEMATOMA INFECTION
     Route: 065
  3. RANITIDINE [Interacting]
     Indication: GASTROOESOPHAGEAL REFLUX DISEASE
     Route: 048
     Dates: start: 19981201
  4. AMIODARONE HCL [Interacting]
     Indication: TORSADE DE POINTES
     Route: 065
  5. POTASSIUM CHLORIDE [Suspect]
     Indication: HYPOKALAEMIA
     Dosage: 40 MEQ/L AT 100 CC/HOUR DURING ICU STAY.
     Route: 042
  6. LOPERAMIDE [Concomitant]
     Indication: HAEMATOMA INFECTION
     Route: 065
  7. NITROFURANTOIN [Concomitant]
     Indication: HAEMATOMA INFECTION
     Route: 065
  8. COTRIM [Concomitant]
     Indication: HAEMATOMA INFECTION
     Route: 065
  9. TETRACYCLINE [Concomitant]
     Indication: HAEMATOMA INFECTION
     Route: 065
  10. METOCLOPRAMIDE [Concomitant]
     Indication: PROPHYLAXIS OF NAUSEA AND VOMITING
     Route: 065
  11. ONDANSETRON [Concomitant]
     Indication: PROPHYLAXIS OF NAUSEA AND VOMITING
     Route: 065
  12. MAGNESIUM SULFATE [Concomitant]
     Indication: HYPOMAGNESAEMIA
     Route: 042
  13. BRETYLIUM [Concomitant]
     Indication: TORSADE DE POINTES
     Route: 065
  14. PHENYTOIN [Concomitant]
     Indication: TORSADE DE POINTES
     Route: 065
  15. ISOPRENALINE HCL [Concomitant]
     Indication: TORSADE DE POINTES
     Route: 065
  16. LIDOCAINE [Concomitant]
     Indication: TORSADE DE POINTES
     Route: 065
  17. MAGNESIUM SULFATE [Concomitant]
     Indication: TORSADE DE POINTES
     Route: 065

REACTIONS (2)
  - DRUG INTERACTION [None]
  - TORSADE DE POINTES [None]
